FAERS Safety Report 4707870-8 (Version None)
Quarter: 2005Q3

REPORT INFORMATION
  Report Type: 
  Country: None (occurrence: None)
  Receive Date: 20050705
  Receipt Date: 20050705
  Transmission Date: 20060218
  Serious: Yes (Other)
  Sender: FDA-Public Use
  Company Number: None

PATIENT
  Age: 82 Year
  Sex: Male
  Weight: 80.7403 kg

DRUGS (5)
  1. CIPROFLOXACIN HCL   500 MGM TABLET    DR. REDDY LABS [Suspect]
     Indication: PYREXIA
     Dosage: 500 MGM   EVERY 12 HOURS   ORAL
     Route: 048
     Dates: start: 20050601, end: 20050623
  2. CIPROFLOXACIN HCL   500 MGM TABLET    DR. REDDY LABS [Suspect]
     Indication: URINARY TRACT INFECTION
     Dosage: 500 MGM   EVERY 12 HOURS   ORAL
     Route: 048
     Dates: start: 20050601, end: 20050623
  3. DIGOXIN [Concomitant]
  4. FLECAINIDE ACETATE [Concomitant]
  5. ASPIRIN [Concomitant]

REACTIONS (1)
  - HALLUCINATION, VISUAL [None]
